FAERS Safety Report 4616184-6 (Version None)
Quarter: 2005Q1

REPORT INFORMATION
  Report Type: 
  Country: None (occurrence: None)
  Receive Date: 20050321
  Receipt Date: 20020104
  Transmission Date: 20050727
  Serious: No
  Sender: FDA-Public Use
  Company Number: 3208

PATIENT
  Age: 4 Day
  Sex: Male

DRUGS (2)
  1. MIDAZOLAM [Suspect]
     Indication: SEDATION
     Dosage: 0.15 MG/KG ONCE IV
     Route: 042
  2. PHENOBARBITAL [Concomitant]

REACTIONS (4)
  - CONVULSION NEONATAL [None]
  - HYPOTONIA NEONATAL [None]
  - INFUSION RELATED REACTION [None]
  - PROCEDURAL COMPLICATION [None]
